FAERS Safety Report 14294968 (Version 1)
Quarter: 2017Q4

REPORT INFORMATION
  Report Type: Report from Study
  Country: None (occurrence: BR)
  Receive Date: 20171218
  Receipt Date: 20171218
  Transmission Date: 20180321
  Serious: Yes (Hospitalization, Other)
  Sender: FDA-Public Use
  Company Number: BR-ABBVIE-17K-020-2191782-00

PATIENT
  Sex: Male

DRUGS (1)
  1. HUMIRA [Suspect]
     Active Substance: ADALIMUMAB
     Indication: RHEUMATOID ARTHRITIS
     Route: 058
     Dates: start: 20161212

REACTIONS (8)
  - Renal failure [Unknown]
  - Dysuria [Recovering/Resolving]
  - Mobility decreased [Recovering/Resolving]
  - Pneumonia [Recovering/Resolving]
  - Renal disorder [Unknown]
  - Liver disorder [Recovering/Resolving]
  - Lung disorder [Recovering/Resolving]
  - Coma [Recovered/Resolved]
